FAERS Safety Report 4383537-3 (Version None)
Quarter: 2004Q2

REPORT INFORMATION
  Report Type: 
  Country: None (occurrence: None)
  Receive Date: 20040602
  Receipt Date: 20031001
  Transmission Date: 20050107
  Serious: Yes (Hospitalization)
  Sender: FDA-Public Use
  Company Number: JRFUSA2000008250

PATIENT
  Age: 47 Year
  Sex: Female
  Weight: 99.7913 kg

DRUGS (7)
  1. PROPULSID [Suspect]
     Indication: IMPAIRED GASTRIC EMPTYING
     Dosage: 20 MG
     Dates: start: 19950112, end: 20000707
  2. CARDIZEM [Concomitant]
  3. DIFLUCAN [Concomitant]
  4. METOPROLOL (METOPROLOL) [Concomitant]
  5. CHLORZOXAZONE [Concomitant]
  6. LEVOXYL [Concomitant]
  7. INSULIN [Concomitant]

REACTIONS (3)
  - ABDOMINAL PAIN [None]
  - ARRHYTHMIA [None]
  - HYPOTHYROIDISM [None]
